FAERS Safety Report 26180424 (Version 1)
Quarter: 2025Q4

REPORT INFORMATION
  Report Type: Spontaneous
  Country: RU (occurrence: RU)
  Receive Date: 20251219
  Receipt Date: 20251219
  Transmission Date: 20260118
  Serious: Yes (Other)
  Sender: SANOFI AVENTIS
  Company Number: RU-SA-2025SA375206

PATIENT
  Age: 61 Year
  Sex: Female
  Weight: 65 kg

DRUGS (4)
  1. ARAVA [Suspect]
     Active Substance: LEFLUNOMIDE
     Indication: Rheumatoid arthritis
     Dosage: 20 MG
     Route: 048
     Dates: start: 20250811, end: 20250830
  2. METHOTREXATE [Suspect]
     Active Substance: METHOTREXATE
     Indication: Rheumatoid arthritis
     Dosage: 12.5 MG, QW
     Route: 058
     Dates: start: 20250301, end: 20250401
  3. FOLIC ACID [Concomitant]
     Active Substance: FOLIC ACID
     Dosage: 10 MG, QW
     Route: 048
     Dates: start: 2009, end: 202505
  4. NIMESULIDE [Concomitant]
     Active Substance: NIMESULIDE
     Dosage: 200 MG
     Route: 048
     Dates: start: 20250809, end: 20250823

REACTIONS (3)
  - Rash pruritic [Recovered/Resolved]
  - Aphthous ulcer [Recovered/Resolved]
  - Swollen tongue [Recovered/Resolved]

NARRATIVE: CASE EVENT DATE: 20250818
